FAERS Safety Report 4305160-9 (Version None)
Quarter: 2004Q1

REPORT INFORMATION
  Report Type: 
  Country: None (occurrence: None)
  Receive Date: 20040225
  Receipt Date: 20040225
  Transmission Date: 20041129
  Serious: Yes (Life-Threatening)
  Sender: FDA-Public Use
  Company Number: None

PATIENT
  Age: 20 Year
  Sex: Male

DRUGS (20)
  1. MORPHINE [Suspect]
     Indication: PAIN
     Dosage: 107 MG OVER 1 HR
     Dates: start: 20031008
  2. ONDANSETRON HCL [Concomitant]
  3. VITK [Concomitant]
  4. KCL TAB [Concomitant]
  5. VANCOMYCIN [Concomitant]
  6. APAP TAB [Concomitant]
  7. ACYCLOVIR [Concomitant]
  8. AMINOCAPROIC ACID [Concomitant]
  9. AZTREONAM [Concomitant]
  10. CHLOROTHIAZIDE [Concomitant]
  11. DIGOXIN [Concomitant]
  12. DIPHENHYDRAMINE HCL [Concomitant]
  13. ENALAPRIL MALEATE [Concomitant]
  14. FILTRASTIM [Concomitant]
  15. FUROSEMIDE [Concomitant]
  16. METOPROLOL [Concomitant]
  17. METRONIDAZOLE [Concomitant]
  18. METHYLPREDNISOLONE [Concomitant]
  19. HYDROCORTISONE [Concomitant]
  20. GENTAMICIN [Concomitant]

REACTIONS (6)
  - CONVULSION [None]
  - HODGKIN'S DISEASE STAGE IV [None]
  - HYPOXIA [None]
  - MALIGNANT NEOPLASM PROGRESSION [None]
  - MEDICATION ERROR [None]
  - RESPIRATORY FAILURE [None]
